FAERS Safety Report 6715011-0 (Version None)
Quarter: 2010Q2

REPORT INFORMATION
  Report Type: 
  Country: None (occurrence: None)
  Receive Date: 20100506
  Receipt Date: 20100506
  Transmission Date: 20101027
  Serious: Yes (Life-Threatening)
  Sender: FDA-Public Use
  Company Number: None

PATIENT
  Age: 12 Month
  Sex: Male
  Weight: 9.0719 kg

DRUGS (3)
  1. TYLENOL INFANT DROPS DYE FREE CHERRY FLAVOR 1 FL OZ [Suspect]
     Indication: DIARRHOEA
     Dosage: 1.6 ML EVERY 4 HOURS PO
     Route: 048
     Dates: start: 20100201, end: 20100301
  2. TYLENOL INFANT DROPS DYE FREE CHERRY FLAVOR 1 FL OZ [Suspect]
     Indication: PYREXIA
     Dosage: 1.6 ML EVERY 4 HOURS PO
     Route: 048
     Dates: start: 20100201, end: 20100301
  3. TYLENOL INFANT DROPS DYE FREE CHERRY FLAVOR 1 FL OZ [Suspect]

REACTIONS (6)
  - COUGH [None]
  - DIARRHOEA [None]
  - MALAISE [None]
  - NASOPHARYNGITIS [None]
  - PYREXIA [None]
  - RHINORRHOEA [None]
